FAERS Safety Report 5950853-0 (Version None)
Quarter: 2008Q4

REPORT INFORMATION
  Report Type: 
  Country: None (occurrence: None)
  Receive Date: 20081110
  Receipt Date: 20081029
  Transmission Date: 20090506
  Serious: Yes (Hospitalization)
  Sender: FDA-Public Use
  Company Number: GXKR2008PH10315

PATIENT
  Age: 11 Year
  Sex: Male

DRUGS (10)
  1. METHYLPREDNISOLONE 4MG TAB [Suspect]
     Indication: IMMUNOSUPPRESSANT DRUG THERAPY
     Dosage: 10 MG/KG, UNK, PULSES, INTRAVENOUS
     Route: 042
  2. MYCOPHENOLATE MOFETIL [Suspect]
     Indication: IMMUNOSUPPRESSANT DRUG THERAPY
     Dosage: 600 MG/M2, BID, UNKNOWN
  3. TACROLIMUS [Suspect]
     Indication: IMMUNOSUPPRESSANT DRUG THERAPY
     Dosage: , UNKNOWN
  4. ALEMTUZUMAB (ALEMTUZUMAB, CAMPATH-1H) [Suspect]
     Indication: IMMUNOSUPPRESSANT DRUG THERAPY
     Dosage: 20 MG, QD, UNKNOWN
  5. ACETAMINOPHEN [Concomitant]
  6. DIPHENHYDRAMINE HCL [Concomitant]
  7. ISONIAZID [Concomitant]
  8. CO-TRIMOXAZOLE (CO-TRIMOXAZOLE) [Concomitant]
  9. VALACYCLOVIR [Concomitant]
  10. NYSTATIN [Concomitant]

REACTIONS (5)
  - CHRONIC ALLOGRAFT NEPHROPATHY [None]
  - FEBRILE NEUTROPENIA [None]
  - KIDNEY TRANSPLANT REJECTION [None]
  - KLEBSIELLA SEPSIS [None]
  - NEPHROPATHY TOXIC [None]
